FAERS Safety Report 10543412 (Version 2)
Quarter: 2014Q4

REPORT INFORMATION
  Report Type: Spontaneous
  Country: US (occurrence: None)
  Receive Date: 20141010
  Receipt Date: 20141205
  Transmission Date: 20150529
  Serious: Yes (Hospitalization)
  Sender: FDA-Public Use
  Company Number: 163-POMAL-14081179

PATIENT
  Age: 61 Year
  Sex: Male
  Weight: 91.7 kg

DRUGS (30)
  1. ACY-1215 (ACY1215) (LIQUID) [Suspect]
     Active Substance: RICOLINOSTAT
     Indication: PLASMA CELL MYELOMA
     Dosage: 2 IN 1 D
     Dates: start: 20140715
  2. DEXAMETHASONE (DEXAMETHASONE) (TABLETS) [Suspect]
     Active Substance: DEXAMETHASONE
     Indication: PLASMA CELL MYELOMA
     Dosage: 1 IN 1 WK
     Dates: start: 20140715
  3. DIPHENHYDRAMINE (DIPHENHYDRAMINE) [Concomitant]
     Active Substance: DIPHENHYDRAMINE
  4. GABAPENTIN (GABAPENTIN) [Concomitant]
     Active Substance: GABAPENTIN
  5. TEMAZEPAM (TEMAZEPAM) [Concomitant]
     Active Substance: TEMAZEPAM
  6. VITAMIN D3 (CHOLECALCIFEROL) [Concomitant]
  7. ZOMETA [Concomitant]
     Active Substance: ZOLEDRONIC ACID
  8. POMALYST [Suspect]
     Active Substance: POMALIDOMIDE
     Indication: PLASMA CELL MYELOMA
     Dosage: 1 IN 1 D
     Route: 048
     Dates: start: 20140715
  9. CALCIUM GLUCONATE (CALCIUM GLUCONATE) [Concomitant]
     Active Substance: CALCIUM GLUCONATE
  10. INSULIN (INSULIN) [Concomitant]
     Active Substance: INSULIN NOS
  11. MORPHINE CR (MORPHINE) [Concomitant]
  12. ACYCLOVIR (ACYCLOVIR) [Concomitant]
     Active Substance: ACYCLOVIR
  13. SODIUM POLYSTYRENE (SODIUM POLYSTYRENE SULFONATE) [Concomitant]
  14. SODIUM CHLORIDE (SODIUM CHLORIDE) [Concomitant]
     Active Substance: SODIUM CHLORIDE
  15. B-COMPLEX-C-FOLIC ACID (MAXIPLEX) [Concomitant]
  16. FUROSEMIDE (FUROSEMIDE) [Concomitant]
     Active Substance: FUROSEMIDE
  17. MAGNESIUM GLUCONATE (MAGNESIUM GLUCONATE) [Concomitant]
  18. CALCIUM CARBONATE-VITAMIN D [Concomitant]
     Active Substance: CALCIUM CARBONATE\VITAMIN D
  19. MULTIVITAMINS (MULTIVITAMINS) [Concomitant]
     Active Substance: VITAMINS
  20. PRBC (RED BLOOD CELLS, CONCENTRATED) [Concomitant]
  21. TRAMADOL (TRAMADOL) [Concomitant]
     Active Substance: TRAMADOL
  22. BUPRENORPHINE (BUPRENORPHINE) [Concomitant]
     Active Substance: BUPRENORPHINE
  23. PROTONIX [Concomitant]
     Active Substance: PANTOPRAZOLE SODIUM
  24. LOTREL (LOTREL) [Concomitant]
  25. DEXTROSE (GLUCOSE) [Concomitant]
  26. CYANOCOBALAMIN (CYANOCOBALAMIN) [Concomitant]
  27. POTASSIUM CHLORIDE (POTASSIUM CHLORIDE) [Concomitant]
     Active Substance: POTASSIUM CHLORIDE
  28. FAMOTIDINE (FAMOTIDINE) [Concomitant]
     Active Substance: FAMOTIDINE
  29. PERCOCET (OXYCOCET) [Concomitant]
  30. IMODIUM (LOPERAMIDE HYDROCHLORIDE) [Concomitant]

REACTIONS (1)
  - Pneumonia [None]

NARRATIVE: CASE EVENT DATE: 20140728
